FAERS Safety Report 5507341-5 (Version None)
Quarter: 2007Q4

REPORT INFORMATION
  Report Type: 
  Country: None (occurrence: None)
  Receive Date: 20071106
  Receipt Date: 20071029
  Transmission Date: 20080405
  Serious: Yes (Other)
  Sender: FDA-Public Use
  Company Number: BE-JNJFOC-20071007965

PATIENT
  Age: 12 Year
  Sex: Male

DRUGS (2)
  1. TOPAMAX [Suspect]
     Indication: MIGRAINE
  2. TOPAMAX [Suspect]
     Indication: EPILEPSY

REACTIONS (1)
  - GROWTH RETARDATION [None]
